FAERS Safety Report 7437629-2 (Version None)
Quarter: 2011Q2

REPORT INFORMATION
  Report Type: 
  Country: None (occurrence: None)
  Receive Date: 20110426
  Receipt Date: 20110422
  Transmission Date: 20111010
  Serious: Yes (Other)
  Sender: FDA-Public Use
  Company Number: JP-ROCHE-753792

PATIENT
  Weight: 2.8 kg

DRUGS (2)
  1. OSELTAMIVIR [Suspect]
     Indication: INFLUENZA
     Dosage: FORM: ORAL FORMATION(NOT OTHERWISE SPECIFIED)
     Route: 064
     Dates: start: 20091121, end: 20091125
  2. CALONAL [Concomitant]
     Dosage: DRUG: ACETAMINOPHEN (CALONAL)
     Dates: start: 20091120, end: 20091123

REACTIONS (4)
  - NORMAL NEWBORN [None]
  - STRABISMUS [None]
  - MATERNAL DRUGS AFFECTING FOETUS [None]
  - DRUG EXPOSURE DURING PREGNANCY [None]
